FAERS Safety Report 25532933 (Version 2)
Quarter: 2025Q3

REPORT INFORMATION
  Report Type: Report from Study
  Country: US (occurrence: US)
  Receive Date: 20250709
  Receipt Date: 20250810
  Transmission Date: 20251021
  Serious: Yes (Other)
  Sender: ALEXION PHARMACEUTICALS
  Company Number: US-ASTRAZENECA-202505USA010697US

PATIENT
  Sex: Female

DRUGS (2)
  1. BENRALIZUMAB [Suspect]
     Active Substance: BENRALIZUMAB
     Indication: Asthma
     Dosage: 30 MILLIGRAM, Q8W, 30MG/ML INJECT 1 PEN UNDER THE SKIN AT WEEK 0 (4/2025), 4 (5/2025) AND 8 (5/21/25), THEN INJECT 1 PEN EVERY 8 WEEKS THEREAFTER
     Dates: start: 202504
  2. BENRALIZUMAB [Suspect]
     Active Substance: BENRALIZUMAB

REACTIONS (1)
  - Cataract [Unknown]
